FAERS Safety Report 5934010-X (Version None)
Quarter: 2008Q4

REPORT INFORMATION
  Report Type: 
  Country: None (occurrence: None)
  Receive Date: 20081029
  Receipt Date: 20081027
  Transmission Date: 20090506
  Serious: Yes (Life-Threatening, Hospitalization, Other)
  Sender: FDA-Public Use
  Company Number: US-ASTRAZENECA-2008UW23968

PATIENT
  Age: 48 Year
  Sex: Female
  Weight: 72.6 kg

DRUGS (1)
  1. FASLODEX [Suspect]
     Indication: COLON CANCER
     Dosage: MONTHLY
     Route: 030

REACTIONS (5)
  - ABDOMINAL DISTENSION [None]
  - BREAST CANCER [None]
  - COLLAPSE OF LUNG [None]
  - COMA [None]
  - WEIGHT INCREASED [None]
